FAERS Safety Report 19000269 (Version 2)
Quarter: 2021Q1

REPORT INFORMATION
  Report Type: Other
  Country: GB (occurrence: GB)
  Receive Date: 20210312
  Receipt Date: 20210328
  Transmission Date: 20210420
  Serious: Yes (Other)
  Sender: FDA-Public Use
  Company Number: GB-ROCHE-2577769

PATIENT
  Age: 53 Year
  Sex: Female

DRUGS (12)
  1. ROACTEMRA [Suspect]
     Active Substance: TOCILIZUMAB
     Indication: RHEUMATOID ARTHRITIS
     Route: 058
     Dates: start: 20190705
  2. ACICLOVIR [Concomitant]
     Active Substance: ACYCLOVIR
     Dosage: 800
  3. DOXEPIN [Concomitant]
     Active Substance: DOXEPIN
  4. OMEPRAZOLE. [Concomitant]
     Active Substance: OMEPRAZOLE
  5. RAMIPRIL. [Concomitant]
     Active Substance: RAMIPRIL
  6. SENNA [Concomitant]
     Active Substance: SENNA LEAF\SENNOSIDES\SENNOSIDES A AND B
  7. SUMATRIPTAN. [Concomitant]
     Active Substance: SUMATRIPTAN
  8. VENLAFAXINE [Concomitant]
     Active Substance: VENLAFAXINE HYDROCHLORIDE
  9. INDAPAMIDE. [Concomitant]
     Active Substance: INDAPAMIDE
  10. ERGOCALCIFEROL. [Concomitant]
     Active Substance: ERGOCALCIFEROL
  11. EVOREL CONTI [Concomitant]
     Active Substance: ESTRADIOL\NORETHINDRONE ACETATE
  12. MEBEVERINE [Concomitant]
     Active Substance: MEBEVERINE
     Dosage: TNL

REACTIONS (4)
  - Blister [Unknown]
  - Bacterial infection [Unknown]
  - Folliculitis [Unknown]
  - Herpes zoster [Unknown]

NARRATIVE: CASE EVENT DATE: 20200824
